FAERS Safety Report 22083289 (Version 1)
Quarter: 2023Q1

REPORT INFORMATION
  Report Type: Spontaneous
  Country: ES (occurrence: ES)
  Receive Date: 20230310
  Receipt Date: 20230310
  Transmission Date: 20230418
  Serious: Yes (Hospitalization, Other)
  Sender: FDA-Public Use
  Company Number: None

PATIENT
  Age: 13 Year
  Sex: Male

DRUGS (17)
  1. MEROPENEM [Suspect]
     Active Substance: MEROPENEM
     Indication: Antibiotic therapy
     Dosage: UNK
     Route: 042
  2. MEROPENEM [Suspect]
     Active Substance: MEROPENEM
     Indication: Staphylococcal infection
  3. MEROPENEM [Suspect]
     Active Substance: MEROPENEM
     Indication: Pyomyositis
  4. VANCOMYCIN [Suspect]
     Active Substance: VANCOMYCIN
     Indication: Antibiotic therapy
     Dosage: UNK
     Route: 042
  5. VANCOMYCIN [Suspect]
     Active Substance: VANCOMYCIN
     Indication: Staphylococcal infection
  6. VANCOMYCIN [Suspect]
     Active Substance: VANCOMYCIN
     Indication: Pyelonephritis
  7. CEFOTAXIME [Suspect]
     Active Substance: CEFOTAXIME SODIUM
     Indication: Antibiotic therapy
     Dosage: UNK, DOSE ADJUSTED BY WEIGHT
     Route: 042
  8. CEFOTAXIME [Suspect]
     Active Substance: CEFOTAXIME SODIUM
     Indication: Staphylococcal infection
  9. CEFOTAXIME [Suspect]
     Active Substance: CEFOTAXIME SODIUM
     Indication: Pyomyositis
  10. DIPYRONE [Suspect]
     Active Substance: DIPYRONE
     Indication: Back pain
     Dosage: UNK
     Route: 065
  11. METAMIZOLE [Suspect]
     Active Substance: METAMIZOLE
     Indication: Back pain
     Dosage: UNK
     Route: 042
  12. GADOBUTROL [Suspect]
     Active Substance: GADOBUTROL
     Indication: Diagnostic procedure
     Dosage: UNK
     Route: 065
  13. GADOBUTROL [Suspect]
     Active Substance: GADOBUTROL
     Dosage: 1 DOSAGE FORM (TOTAL)
     Route: 042
  14. ACETAMINOPHEN [Concomitant]
     Active Substance: ACETAMINOPHEN
     Indication: Back pain
     Dosage: UNK
     Route: 065
  15. DEXKETOPROFEN [Concomitant]
     Active Substance: DEXKETOPROFEN
     Indication: Back pain
     Dosage: UNK
     Route: 065
  16. RIFAMPIN [Concomitant]
     Active Substance: RIFAMPIN
     Indication: Pyomyositis
     Dosage: UNK
     Route: 048
  17. CLOXACILLIN [Concomitant]
     Active Substance: CLOXACILLIN
     Indication: Pyomyositis
     Dosage: UNK
     Route: 048

REACTIONS (3)
  - Liver function test abnormal [None]
  - Renal function test abnormal [None]
  - Drug reaction with eosinophilia and systemic symptoms [None]
